FAERS Safety Report 23805418 (Version 1)
Quarter: 2024Q2

REPORT INFORMATION
  Report Type: Spontaneous
  Country: TW (occurrence: TW)
  Receive Date: 20240502
  Receipt Date: 20240502
  Transmission Date: 20240716
  Serious: Yes (Other)
  Sender: FDA-Public Use
  Company Number: TW-MTPC-MTPC2024-0009079

PATIENT
  Age: 61 Year
  Sex: Male

DRUGS (1)
  1. REMICADE [Suspect]
     Active Substance: INFLIXIMAB
     Indication: Colitis ulcerative
     Dosage: 3 MILLIGRAM/KILOGRAM, Q8WEEKS
     Route: 042
     Dates: start: 20220110, end: 20240424

REACTIONS (3)
  - Disease progression [Unknown]
  - Rectal haemorrhage [Unknown]
  - Frequent bowel movements [Unknown]

NARRATIVE: CASE EVENT DATE: 20240201
